FAERS Safety Report 11238957 (Version 2)
Quarter: 2015Q3

REPORT INFORMATION
  Report Type: Spontaneous
  Country: US (occurrence: US)
  Receive Date: 20150706
  Receipt Date: 20150708
  Transmission Date: 20151125
  Serious: Yes (Hospitalization)
  Sender: FDA-Public Use
  Company Number: US-JNJFOC-20150701708

PATIENT
  Age: 3 Year

DRUGS (1)
  1. TYLENOL EZ [Suspect]
     Active Substance: ACETAMINOPHEN
     Indication: ACCIDENTAL EXPOSURE TO PRODUCT
     Route: 048

REACTIONS (5)
  - Acute lung injury [Unknown]
  - Acute hepatic failure [Unknown]
  - Accidental exposure to product by child [Unknown]
  - Failure of child resistant mechanism for pharmaceutical product [Unknown]
  - Overdose [Unknown]
